FAERS Safety Report 9521135 (Version 1)
Quarter: 2013Q3

REPORT INFORMATION
  Report Type: Spontaneous
  Country: US (occurrence: None)
  Receive Date: 20130911
  Receipt Date: 20130911
  Transmission Date: 20140515
  Serious: No
  Sender: FDA-Public Use
  Company Number: AEUSA201300031

PATIENT
  Age: 47 Year
  Sex: Female

DRUGS (2)
  1. GAMUNEX-C (10 PCT) [Suspect]
     Indication: PRIMARY IMMUNODEFICIENCY SYNDROME
     Dates: start: 20130116
  2. BENADRYL /01563701/ [Concomitant]

REACTIONS (3)
  - Hypotension [None]
  - Chills [None]
  - Infusion related reaction [None]
